FAERS Safety Report 6412468-X (Version None)
Quarter: 2009Q4

REPORT INFORMATION
  Report Type: 
  Country: None (occurrence: None)
  Receive Date: 20091023
  Receipt Date: 20091012
  Transmission Date: 20100525
  Serious: Yes (Hospitalization)
  Sender: FDA-Public Use
  Company Number: DE-ELI_LILLY_AND_COMPANY-DE200910002792

PATIENT
  Sex: Female
  Weight: 52 kg

DRUGS (5)
  1. PEMETREXED [Suspect]
     Indication: NON-SMALL CELL LUNG CANCER
     Dosage: 780 MG, OTHER
     Dates: start: 20090806, end: 20091013
  2. CISPLATIN [Suspect]
     Indication: NON-SMALL CELL LUNG CANCER
     Dosage: 120 MG, OTHER
     Dates: start: 20090806, end: 20091013
  3. AMITRIPTYLINE HYDROCHLORIDE [Concomitant]
     Indication: DEPRESSION
     Dates: start: 20090601
  4. BROMAZEPAM [Concomitant]
     Indication: DEPRESSION
     Dates: start: 20090601
  5. FOLSAN [Concomitant]
     Indication: PROPHYLAXIS
     Dates: start: 20090801

REACTIONS (2)
  - DEPRESSION [None]
  - PANIC ATTACK [None]
